FAERS Safety Report 17096553 (Version 3)
Quarter: 2019Q4

REPORT INFORMATION
  Report Type: Report from Study
  Country: US (occurrence: US)
  Receive Date: 20191202
  Receipt Date: 20191216
  Transmission Date: 20200122
  Serious: Yes (Death, Hospitalization)
  Sender: FDA-Public Use
  Company Number: US-EMD SERONO-9131113

PATIENT
  Age: 57 Year
  Sex: Female

DRUGS (2)
  1. REBIF [Suspect]
     Active Substance: INTERFERON BETA-1A
     Indication: PRODUCT USED FOR UNKNOWN INDICATION
     Route: 058
     Dates: start: 20191030
  2. REBIF [Suspect]
     Active Substance: INTERFERON BETA-1A
     Dosage: TITRATION 22MCG
     Route: 058
     Dates: start: 2019

REACTIONS (7)
  - Sedation [Not Recovered/Not Resolved]
  - Death [Fatal]
  - Discomfort [Not Recovered/Not Resolved]
  - Renal failure [Unknown]
  - Moaning [Not Recovered/Not Resolved]
  - Emotional distress [Unknown]
  - Decreased appetite [Unknown]

NARRATIVE: CASE EVENT DATE: 2019
